FAERS Safety Report 22243711 (Version 1)
Quarter: 2023Q2

REPORT INFORMATION
  Report Type: Spontaneous
  Country: IN (occurrence: IN)
  Receive Date: 20230424
  Receipt Date: 20230424
  Transmission Date: 20230721
  Serious: Yes (Other)
  Sender: FDA-Public Use
  Company Number: IN-STRIDES ARCOLAB LIMITED-2023SP005609

PATIENT
  Sex: Female

DRUGS (14)
  1. OLANZAPINE [Suspect]
     Active Substance: OLANZAPINE
     Indication: Product used for unknown indication
     Dosage: UNK (THE PATIENT^S MOTHER RECEIVED 20 MG FOR 2 WEEK, 10 MG TWICE DAILY, 20 MG / DAY) (TABLET)
     Route: 064
  2. OLANZAPINE [Suspect]
     Active Substance: OLANZAPINE
     Dosage: UNK (MOTHER RECEIVED 10 MG / DAY)
     Route: 063
  3. CYANOCOBALAMIN [Suspect]
     Active Substance: CYANOCOBALAMIN
     Indication: Product used for unknown indication
     Dosage: UNK
     Route: 064
  4. DEXAMETHASONE [Suspect]
     Active Substance: DEXAMETHASONE
     Indication: Maternal therapy to enhance foetal lung maturity
     Dosage: UNK (MOTHER RECEIVED 6 MG)
     Route: 064
  5. HALOPERIDOL [Suspect]
     Active Substance: HALOPERIDOL
     Indication: Product used for unknown indication
     Dosage: UNK (MOTHER RECEIVED REPEATED DOSES UPTO 20MG, INJECTION)
     Route: 064
  6. CHOLECALCIFEROL [Suspect]
     Active Substance: CHOLECALCIFEROL
     Indication: Product used for unknown indication
     Dosage: UNK
     Route: 064
  7. FERROUS GLUCONATE [Suspect]
     Active Substance: FERROUS GLUCONATE
     Indication: Product used for unknown indication
     Dosage: UNK
     Route: 064
  8. FOLIC ACID [Suspect]
     Active Substance: FOLIC ACID
     Indication: Product used for unknown indication
     Dosage: UNK
     Route: 064
  9. HYDROXYPROGESTERONE [Suspect]
     Active Substance: HYDROXYPROGESTERONE
     Indication: Product used for unknown indication
     Dosage: UNK (MOTHER RECEIVED 500 MG ONCE WEEKLY)
     Route: 064
  10. LORAZEPAM [Suspect]
     Active Substance: LORAZEPAM
     Indication: Product used for unknown indication
     Dosage: UNK (MOTHER RECEIVED 2 MG AND TAPERED-OFF DOSAGE)
     Route: 064
  11. PROGESTERONE [Suspect]
     Active Substance: PROGESTERONE
     Indication: Product used for unknown indication
     Dosage: UNK (MOTHER RECEIVED 200 MG TWICE DAILY)
     Route: 064
  12. PROPOFOL [Suspect]
     Active Substance: PROPOFOL
     Indication: Product used for unknown indication
     Dosage: UNK (MOTHER RECEIVED 120 MG)
     Route: 064
  13. RISPERIDONE [Suspect]
     Active Substance: RISPERIDONE
     Indication: Product used for unknown indication
     Dosage: UNK (MOTHER RECEIVED UP TO 4MG)
     Route: 064
  14. SUCCINYLCHOLINE [Suspect]
     Active Substance: SUCCINYLCHOLINE
     Indication: Product used for unknown indication
     Dosage: UNK (MOTHER RECEIVED 40 MG)
     Route: 064

REACTIONS (3)
  - Premature baby [Unknown]
  - Foetal exposure during pregnancy [Unknown]
  - Exposure via breast milk [Unknown]
